FAERS Safety Report 12977552 (Version 1)
Quarter: 2016Q4

REPORT INFORMATION
  Report Type: Report from Study
  Country: US (occurrence: US)
  Receive Date: 20161128
  Receipt Date: 20161128
  Transmission Date: 20170207
  Serious: Yes (Hospitalization, Other)
  Sender: FDA-Public Use
  Company Number: US-CLINIGEN GROUP PLC/ CLINIGEN HEALTHCARE LTD-E2B_00001212

PATIENT
  Age: 59 Year
  Sex: Male
  Weight: 86.2 kg

DRUGS (9)
  1. CARBOPLATIN. [Concomitant]
     Active Substance: CARBOPLATIN
     Dates: start: 20040607
  2. ETHYOL [Suspect]
     Active Substance: AMIFOSTINE
     Indication: RADIOTHERAPY
     Dosage: UNK
     Route: 042
     Dates: end: 20040628
  3. ETHYOL [Suspect]
     Active Substance: AMIFOSTINE
     Indication: CHEMOTHERAPY
     Dosage: UNK
     Route: 042
     Dates: start: 20040607, end: 20040616
  4. TAXOL [Concomitant]
     Active Substance: PACLITAXEL
     Dates: start: 20040607, end: 20040628
  5. DEXAMETHASONE. [Concomitant]
     Active Substance: DEXAMETHASONE
  6. RADIATION THERAPY [Concomitant]
     Active Substance: RADIATION THERAPY
     Dates: start: 20040607
  7. ETHYOL [Suspect]
     Active Substance: AMIFOSTINE
     Indication: RADIOTHERAPY
     Dosage: UNK
     Route: 042
     Dates: start: 20040607, end: 20040616
  8. ETHYOL [Suspect]
     Active Substance: AMIFOSTINE
     Indication: CHEMOTHERAPY
     Dosage: UNK
     Route: 042
     Dates: end: 20040628
  9. THORAZINE [Concomitant]
     Active Substance: CHLORPROMAZINE
     Dates: start: 20040615, end: 20040615

REACTIONS (3)
  - Rash erythematous [Unknown]
  - Sepsis [Unknown]
  - Anaphylactic reaction [Unknown]

NARRATIVE: CASE EVENT DATE: 20040616
